FAERS Safety Report 22040715 (Version 1)
Quarter: 2023Q1

REPORT INFORMATION
  Report Type: Spontaneous
  Country: GB (occurrence: GB)
  Receive Date: 20230227
  Receipt Date: 20230227
  Transmission Date: 20230417
  Serious: Yes (Hospitalization)
  Sender: FDA-Public Use
  Company Number: GB-AMNEAL PHARMACEUTICALS-2023-AMRX-00638

PATIENT
  Age: 49 Year
  Sex: Male

DRUGS (2)
  1. BACLOFEN [Suspect]
     Active Substance: BACLOFEN
     Indication: Product used for unknown indication
     Dosage: 150 MICROGRAM, QD
     Route: 037
     Dates: start: 20230131, end: 2023
  2. BACLOFEN [Suspect]
     Active Substance: BACLOFEN
     Dosage: UNK, DOSAGE WAS REDUCED OVER TIME, CURRENTLY ON MINIMUM DOSE
     Route: 037
     Dates: start: 2023

REACTIONS (5)
  - Muscular weakness [Recovered/Resolved]
  - Hypoaesthesia [Recovered/Resolved]
  - Headache [Recovered/Resolved]
  - Urinary incontinence [Recovered/Resolved]
  - Overdose [Unknown]

NARRATIVE: CASE EVENT DATE: 20230203
